FAERS Safety Report 6966048-8 (Version None)
Quarter: 2010Q3

REPORT INFORMATION
  Report Type: 
  Country: None (occurrence: None)
  Receive Date: 20100903
  Receipt Date: 20100607
  Transmission Date: 20110219
  Serious: No
  Sender: FDA-Public Use
  Company Number: A0861715A

PATIENT
  Age: 43 Year
  Sex: Female

DRUGS (4)
  1. LAMICTAL [Suspect]
     Indication: BIPOLAR DISORDER
     Dosage: 100MG SEE DOSAGE TEXT
     Route: 048
     Dates: start: 20100401
  2. LITHIUM [Concomitant]
  3. COGENTIN [Concomitant]
  4. ZYPREXA [Concomitant]

REACTIONS (2)
  - CRYING [None]
  - DEPRESSION [None]
